FAERS Safety Report 5337866-7 (Version None)
Quarter: 2007Q2

REPORT INFORMATION
  Report Type: 
  Country: None (occurrence: None)
  Receive Date: 20070308
  Receipt Date: 20061208
  Transmission Date: 20071010
  Serious: No
  Sender: FDA-Public Use
  Company Number: 2006-BP-12647BP

PATIENT
  Age: 63 Year
  Sex: Female

DRUGS (8)
  1. SPIRIVA [Suspect]
     Indication: ASTHMA
     Dosage: 18 MCG (18 MCG, 1 IN 1 D), IH
     Route: 055
     Dates: start: 20061020
  2. ALBUTEROL [Concomitant]
  3. CETIRIZINE HCL [Concomitant]
  4. DIPHENOXYLATE ATROPINE (DIPHENOXYLATE W/ATROPINE SULFATE) [Concomitant]
  5. SYNTHROID [Concomitant]
  6. OXYBUTYNIN CHLORIDE [Concomitant]
  7. ROBAXIN [Concomitant]
  8. VICODIN [Concomitant]

REACTIONS (3)
  - COLD SWEAT [None]
  - DIARRHOEA [None]
  - VOMITING [None]
